FAERS Safety Report 17705218 (Version 11)
Quarter: 2022Q1

REPORT INFORMATION
  Report Type: Spontaneous
  Country: US (occurrence: US)
  Receive Date: 20200424
  Receipt Date: 20220106
  Transmission Date: 20220424
  Serious: Yes (Other)
  Sender: FDA-Public Use
  Company Number: US-PFIZER INC-2020163549

PATIENT
  Age: 69 Year
  Sex: Female
  Weight: 68.04 kg

DRUGS (4)
  1. LYRICA [Suspect]
     Active Substance: PREGABALIN
     Indication: Restless legs syndrome
     Dosage: UNK
  2. LYRICA [Suspect]
     Active Substance: PREGABALIN
     Indication: Dyspnoea
     Dosage: 150 MG, 2X/DAY
  3. LYRICA [Suspect]
     Active Substance: PREGABALIN
     Indication: Fibromyalgia
     Dosage: 150 MG, 1X/DAY
  4. FAMOTIDINE [Concomitant]
     Active Substance: FAMOTIDINE
     Indication: Gastric disorder
     Dosage: UNK

REACTIONS (9)
  - Diverticulitis [Unknown]
  - Intentional product use issue [Unknown]
  - Allergy to animal [Unknown]
  - Arthropod bite [Not Recovered/Not Resolved]
  - Allergy to arthropod bite [Unknown]
  - Food allergy [Unknown]
  - Feeling abnormal [Unknown]
  - Dyslexia [Unknown]
  - Eye disorder [Unknown]
